FAERS Safety Report 6990213-7 (Version None)
Quarter: 2010Q3

REPORT INFORMATION
  Report Type: 
  Country: None (occurrence: None)
  Receive Date: 20100916
  Receipt Date: 20100520
  Transmission Date: 20110219
  Serious: Yes (Other)
  Sender: FDA-Public Use
  Company Number: BR-PFIZER INC-2010050914

PATIENT
  Sex: Female

DRUGS (6)
  1. LYRICA [Suspect]
     Indication: PAIN
     Dosage: 75MG
     Route: 048
     Dates: start: 20100401
  2. LYRICA [Suspect]
     Dosage: UNKNOWN DOSE, TWO TABLETS A DAY
     Route: 048
  3. GLYCEROL [Suspect]
     Indication: CONSTIPATION
     Dosage: UNK
     Route: 054
  4. MINERAL OIL EMULSION [Concomitant]
     Indication: CONSTIPATION
     Route: 048
  5. VERAPAMIL [Concomitant]
     Indication: HYPERTENSION
     Dosage: UNK
  6. AMIODARONE [Concomitant]
     Indication: PALPITATIONS
     Dosage: UNK

REACTIONS (9)
  - CONSTIPATION [None]
  - DECREASED APPETITE [None]
  - DRUG INEFFECTIVE [None]
  - GASTRITIS EROSIVE [None]
  - HELICOBACTER INFECTION [None]
  - PAIN [None]
  - SELF ESTEEM DECREASED [None]
  - URINARY TRACT INFECTION [None]
  - WEIGHT DECREASED [None]
